FAERS Safety Report 7437255-5 (Version None)
Quarter: 2011Q2

REPORT INFORMATION
  Report Type: 
  Country: None (occurrence: None)
  Receive Date: 20110426
  Receipt Date: 20110414
  Transmission Date: 20111010
  Serious: Yes (Hospitalization, Other)
  Sender: FDA-Public Use
  Company Number: US-BRISTOL-MYERS SQUIBB COMPANY-15689425

PATIENT
  Age: 69 Year
  Sex: Female

DRUGS (11)
  1. FUROSEMIDE [Concomitant]
  2. AMIODARONE [Concomitant]
  3. GLYBURIDE [Concomitant]
     Dosage: SIL-NORBORAL
  4. LISINOPRIL [Concomitant]
  5. CLONIDINE [Concomitant]
  6. VALSARTAN [Concomitant]
  7. AMLODIPINE [Concomitant]
  8. GABAPENTIN [Concomitant]
  9. ATORVASTATIN [Concomitant]
  10. METFORMIN HCL [Suspect]
  11. OMEPRAZOLE [Concomitant]

REACTIONS (3)
  - LACTIC ACIDOSIS [None]
  - HYPERKALAEMIA [None]
  - HYPOGLYCAEMIA [None]
